FAERS Safety Report 10233421 (Version 1)
Quarter: 2014Q2

REPORT INFORMATION
  Report Type: Spontaneous
  Country: US (occurrence: US)
  Receive Date: 20140612
  Receipt Date: 20140612
  Transmission Date: 20141212
  Serious: Yes (Other)
  Sender: FDA-Public Use
  Company Number: US-JNJFOC-20140602915

PATIENT
  Age: 51 Year
  Sex: Male

DRUGS (4)
  1. STELARA [Suspect]
     Indication: PSORIASIS
     Route: 058
     Dates: start: 20140312
  2. STELARA [Suspect]
     Indication: PSORIASIS
     Route: 058
     Dates: start: 20140604
  3. STELARA [Suspect]
     Indication: PSORIASIS
     Route: 058
  4. STELARA [Suspect]
     Indication: PSORIASIS
     Route: 058
     Dates: start: 20131219

REACTIONS (1)
  - Myocardial infarction [Recovered/Resolved]
